FAERS Safety Report 9283880 (Version 2)
Quarter: 2013Q2

REPORT INFORMATION
  Report Type: Spontaneous
  Country: FR (occurrence: FR)
  Receive Date: 20130510
  Receipt Date: 20130530
  Transmission Date: 20140414
  Serious: Yes (Other)
  Sender: FDA-Public Use
  Company Number: FR-AMGEN-FRASP2013032909

PATIENT
  Age: 41 Year
  Sex: Female

DRUGS (3)
  1. ENBREL [Suspect]
     Indication: ANKYLOSING SPONDYLITIS
     Dosage: 50 MG, UNK
     Dates: end: 201304
  2. ENBREL [Suspect]
     Dosage: 50 MG, UNK
     Dates: start: 20130429
  3. CORTANCYL [Concomitant]
     Dosage: 10 MG, 1X/DAY

REACTIONS (7)
  - Sensation of heaviness [Unknown]
  - Tooth infection [Unknown]
  - Injection site swelling [Recovering/Resolving]
  - Injection site erythema [Recovering/Resolving]
  - Injection site pruritus [Recovering/Resolving]
  - Injection site induration [Recovering/Resolving]
  - Injection site discolouration [Not Recovered/Not Resolved]
